FAERS Safety Report 4291269-5 (Version None)
Quarter: 2004Q1

REPORT INFORMATION
  Report Type: 
  Country: None (occurrence: None)
  Receive Date: 20040211
  Receipt Date: 20031125
  Transmission Date: 20041129
  Serious: No
  Sender: FDA-Public Use
  Company Number: US-GLAXOSMITHKLINE-A0441102A

PATIENT
  Age: 36 Year
  Sex: Female

DRUGS (2)
  1. PAXIL [Suspect]
     Indication: DEPRESSION
     Dosage: 20MG PER DAY
     Route: 048
     Dates: start: 20020901, end: 20031124
  2. WELLBUTRIN SR [Concomitant]
     Dosage: 100MG TWICE PER DAY
     Route: 048
     Dates: start: 20031101

REACTIONS (5)
  - ANXIETY [None]
  - DRUG WITHDRAWAL SYNDROME [None]
  - HYPERHIDROSIS [None]
  - PARAESTHESIA [None]
  - SEXUAL DYSFUNCTION [None]
